FAERS Safety Report 23171928 (Version 1)
Quarter: 2023Q4

REPORT INFORMATION
  Report Type: Spontaneous
  Country: AU (occurrence: None)
  Receive Date: 20231109
  Receipt Date: 20231109
  Transmission Date: 20240110
  Serious: Yes (Other)
  Sender: FDA-Public Use
  Company Number: None

PATIENT
  Sex: Male
  Weight: 105 kg

DRUGS (1)
  1. PALIPERIDONE PALMITATE [Suspect]
     Active Substance: PALIPERIDONE PALMITATE

REACTIONS (7)
  - Anger [None]
  - Anorectal disorder [None]
  - Gastrointestinal oedema [None]
  - Emotional distress [None]
  - Contraindication to medical treatment [None]
  - Legal problem [None]
  - Refusal of treatment by patient [None]
